FAERS Safety Report 16337805 (Version 2)
Quarter: 2019Q2

REPORT INFORMATION
  Report Type: Spontaneous
  Country: US (occurrence: US)
  Receive Date: 20190521
  Receipt Date: 20190628
  Transmission Date: 20190711
  Serious: Yes (Hospitalization, Other)
  Sender: FDA-Public Use
  Company Number: US-BRISTOL-MYERS SQUIBB COMPANY-BMS-2019-049191

PATIENT
  Sex: Male
  Weight: 94.79 kg

DRUGS (3)
  1. PLAVIX [Suspect]
     Active Substance: CLOPIDOGREL BISULFATE
     Indication: PRODUCT USED FOR UNKNOWN INDICATION
     Dosage: UNK UNK, QD
     Route: 065
     Dates: start: 201903
  2. ELIQUIS [Suspect]
     Active Substance: APIXABAN
     Indication: PRODUCT USED FOR UNKNOWN INDICATION
     Dosage: UNK UNK, BID
     Route: 048
     Dates: start: 201903
  3. METFORMIN [Concomitant]
     Active Substance: METFORMIN HYDROCHLORIDE
     Indication: TYPE 2 DIABETES MELLITUS
     Dosage: UNK
     Route: 065

REACTIONS (15)
  - Pain [Unknown]
  - Asthenia [Unknown]
  - Product use issue [Unknown]
  - Weight decreased [Unknown]
  - Intentional product use issue [Unknown]
  - Epistaxis [Unknown]
  - Skin discolouration [Recovering/Resolving]
  - Dizziness [Unknown]
  - Drug ineffective [Unknown]
  - Anger [Unknown]
  - Fatigue [Unknown]
  - Memory impairment [Unknown]
  - Embolism [Unknown]
  - Contraindicated product administered [Unknown]
  - Sneezing [Unknown]
